FAERS Safety Report 4872273-2 (Version None)
Quarter: 2005Q4

REPORT INFORMATION
  Report Type: 
  Country: None (occurrence: None)
  Receive Date: 20051201
  Receipt Date: 20050801
  Transmission Date: 20060501
  Serious: No
  Sender: FDA-Public Use
  Company Number: 2005PV000784

PATIENT
  Age: 58 Year
  Sex: Female
  Weight: 83.0083 kg

DRUGS (13)
  1. BYETTA [Suspect]
     Indication: DIABETES MELLITUS NON-INSULIN-DEPENDENT
     Dosage: 5 MCG; BID; SC
     Route: 058
     Dates: start: 20050721
  2. BYETTA [Suspect]
     Indication: INSULIN RESISTANCE
     Dosage: 5 MCG; BID; SC
     Route: 058
     Dates: start: 20050721
  3. PLAVIX [Concomitant]
  4. PREMARIN [Concomitant]
  5. AVALIDE [Concomitant]
  6. SYNTHROID [Concomitant]
  7. METFORMIN [Concomitant]
  8. NEXIUM [Concomitant]
  9. CRESTOR [Concomitant]
  10. DILTIAZEM HCL [Concomitant]
  11. SINGULAIR [Concomitant]
  12. VOLTEX [Concomitant]
  13. TOPAMAX [Concomitant]

REACTIONS (6)
  - DYSPEPSIA [None]
  - ERUCTATION [None]
  - NAUSEA [None]
  - SENSITIVITY OF TEETH [None]
  - TOOTHACHE [None]
  - WEIGHT DECREASED [None]
